FAERS Safety Report 6430472-2 (Version None)
Quarter: 2009Q4

REPORT INFORMATION
  Report Type: 
  Country: None (occurrence: None)
  Receive Date: 20091106
  Receipt Date: 20091102
  Transmission Date: 20100525
  Serious: Yes (Other)
  Sender: FDA-Public Use
  Company Number: US-ELI_LILLY_AND_COMPANY-US200911000437

PATIENT
  Sex: Male

DRUGS (5)
  1. HUMALOG [Suspect]
     Dosage: UNK, AS NEEDED
     Dates: start: 20080101
  2. HUMALOG [Suspect]
     Dosage: 28 U, OTHER
     Dates: start: 20091101, end: 20091101
  3. LANTUS [Concomitant]
     Dosage: 28 U, EACH MORNING
  4. ATENOLOL [Concomitant]
     Indication: CARDIAC DISORDER
  5. NORVASC [Concomitant]
     Indication: CARDIAC DISORDER

REACTIONS (8)
  - BLOOD GLUCOSE DECREASED [None]
  - BLOOD GLUCOSE FLUCTUATION [None]
  - COLON CANCER [None]
  - FEELING ABNORMAL [None]
  - HYPERHIDROSIS [None]
  - INCORRECT DOSE ADMINISTERED [None]
  - MEDICATION ERROR [None]
  - WRONG DRUG ADMINISTERED [None]
